FAERS Safety Report 14178163 (Version 1)
Quarter: 2017Q4

REPORT INFORMATION
  Report Type: Spontaneous
  Country: RU (occurrence: RU)
  Receive Date: 20171110
  Receipt Date: 20171110
  Transmission Date: 20180321
  Serious: Yes (Hospitalization, Other)
  Sender: FDA-Public Use
  Company Number: RU-ASTRAZENECA-2017SF13452

PATIENT
  Age: 78 Year
  Sex: Female
  Weight: 42 kg

DRUGS (5)
  1. NOLPAZA [Concomitant]
     Active Substance: PANTOPRAZOLE SODIUM
  2. BRILINTA [Suspect]
     Active Substance: TICAGRELOR
     Indication: MYOCARDIAL INFARCTION
     Route: 048
     Dates: start: 201709
  3. THROMBO ASS [Concomitant]
     Active Substance: ASPIRIN
  4. SORBIFER DURULES [Concomitant]
     Active Substance: FERROUS SULFATE
  5. CONCOR [Concomitant]
     Active Substance: BISOPROLOL FUMARATE

REACTIONS (3)
  - Pneumonia [Recovering/Resolving]
  - Pyelonephritis acute [Recovering/Resolving]
  - Weight decreased [Unknown]

NARRATIVE: CASE EVENT DATE: 201709
